FAERS Safety Report 10145935 (Version 1)
Quarter: 2014Q2

REPORT INFORMATION
  Report Type: Report from Study
  Country: US (occurrence: US)
  Receive Date: 20140501
  Receipt Date: 20140501
  Transmission Date: 20141212
  Serious: No
  Sender: FDA-Public Use
  Company Number: US-ABBVIE-13P-163-1155359-00

PATIENT
  Age: 66 Year
  Sex: Female
  Weight: 68.1 kg

DRUGS (11)
  1. CREON [Suspect]
     Indication: DIARRHOEA
     Dosage: 4 CAPSULES WITH EACH MEAL
     Route: 048
     Dates: start: 201307, end: 201309
  2. CREON [Suspect]
     Indication: FLATULENCE
  3. OMEPRAZOLE [Concomitant]
     Indication: GASTRIC BYPASS
  4. LEVOTHYROXINE [Concomitant]
     Indication: HYPOTHYROIDISM
  5. TYLENOL WITH CODEINE [Concomitant]
     Indication: GASTROINTESTINAL HYPERMOTILITY
  6. LOMOTIL [Concomitant]
     Indication: DIARRHOEA
  7. VITAMIN D [Concomitant]
     Indication: VITAMIN SUPPLEMENTATION
  8. MULTIPLE VITAMINS [Concomitant]
     Indication: VITAMIN SUPPLEMENTATION
  9. CALCIUM [Concomitant]
     Indication: MINERAL SUPPLEMENTATION
  10. PROBIOTICS [Concomitant]
     Indication: DYSPEPSIA
  11. LORATADINE [Concomitant]
     Indication: HYPERSENSITIVITY

REACTIONS (3)
  - Off label use [Unknown]
  - Flatulence [Not Recovered/Not Resolved]
  - Abdominal pain [Not Recovered/Not Resolved]
